FAERS Safety Report 22062034 (Version 1)
Quarter: 2023Q1

REPORT INFORMATION
  Report Type: Spontaneous
  Country: US (occurrence: US)
  Receive Date: 20230304
  Receipt Date: 20230304
  Transmission Date: 20230418
  Serious: Yes (Other)
  Sender: FDA-Public Use
  Company Number: US-AUROBINDO-AUR-APL-2023-009435

PATIENT
  Sex: Female

DRUGS (1)
  1. LOSARTAN POTASSIUM [Suspect]
     Active Substance: LOSARTAN POTASSIUM
     Indication: Blood pressure measurement
     Dosage: UNK,(TWO AND HALF MONTHS AGO )
     Route: 065
     Dates: start: 20221129

REACTIONS (6)
  - Hypokalaemia [Unknown]
  - Confusional state [Not Recovered/Not Resolved]
  - Dizziness [Not Recovered/Not Resolved]
  - Hyponatraemia [Unknown]
  - Hypochloraemia [Unknown]
  - Tremor [Unknown]

NARRATIVE: CASE EVENT DATE: 20230101
